FAERS Safety Report 9676967 (Version 1)
Quarter: 2013Q4

REPORT INFORMATION
  Report Type: Spontaneous
  Country: NL (occurrence: NL)
  Receive Date: 20131108
  Receipt Date: 20131108
  Transmission Date: 20140711
  Serious: Yes (Hospitalization)
  Sender: FDA-Public Use
  Company Number: NL-AMGEN-NLDSP2013078019

PATIENT
  Age: 78 Year
  Sex: Female

DRUGS (3)
  1. XGEVA [Suspect]
     Indication: PRODUCT USED FOR UNKNOWN INDICATION
     Dosage: 120 MG, Q4WK
     Route: 065
     Dates: start: 20130410
  2. XGEVA [Suspect]
     Dosage: 120 MG, Q4WK
     Route: 065
  3. XGEVA [Suspect]
     Dosage: 120 MG, Q4WK
     Route: 065

REACTIONS (1)
  - Dyspnoea [Unknown]
